FAERS Safety Report 11172310 (Version 1)
Quarter: 2015Q2

REPORT INFORMATION
  Report Type: Report from Study
  Country: US (occurrence: US)
  Receive Date: 20150608
  Receipt Date: 20150608
  Transmission Date: 20150821
  Serious: Yes (Other)
  Sender: FDA-Public Use
  Company Number: US-GILEAD-2015-0156190

PATIENT
  Age: 56 Year
  Sex: Female

DRUGS (13)
  1. PROZAC [Concomitant]
     Active Substance: FLUOXETINE HYDROCHLORIDE
  2. IBUPROFEN. [Concomitant]
     Active Substance: IBUPROFEN
  3. DIGOXIN. [Concomitant]
     Active Substance: DIGOXIN
  4. ALDACTONE [Concomitant]
     Active Substance: SPIRONOLACTONE
  5. BIOTIN [Concomitant]
     Active Substance: BIOTIN
  6. ADCIRCA [Concomitant]
     Active Substance: TADALAFIL
  7. CRESTOR [Concomitant]
     Active Substance: ROSUVASTATIN CALCIUM
  8. BACTRIM [Concomitant]
     Active Substance: SULFAMETHOXAZOLE\TRIMETHOPRIM
  9. AZATHIOPRINE. [Concomitant]
     Active Substance: AZATHIOPRINE
  10. AMBRISENTAN [Suspect]
     Active Substance: AMBRISENTAN
     Indication: PULMONARY ARTERIAL HYPERTENSION
     Dosage: 10 MG, QD
     Route: 065
     Dates: start: 20071218, end: 20150527
  11. NORVASC [Concomitant]
     Active Substance: AMLODIPINE BESYLATE
  12. LASIX [Concomitant]
     Active Substance: FUROSEMIDE
  13. PREDNISONE. [Concomitant]
     Active Substance: PREDNISONE

REACTIONS (2)
  - Pulmonary hypertension [Not Recovered/Not Resolved]
  - Chest pain [Recovered/Resolved]

NARRATIVE: CASE EVENT DATE: 20150301
